FAERS Safety Report 8420258-1 (Version None)
Quarter: 2012Q2

REPORT INFORMATION
  Report Type: 
  Country: None (occurrence: None)
  Receive Date: 20120607
  Receipt Date: 20120604
  Transmission Date: 20120825
  Serious: Yes (Hospitalization, Other)
  Sender: FDA-Public Use
  Company Number: US-PFIZER INC-2012099910

PATIENT
  Sex: Female

DRUGS (1)
  1. LYRICA [Suspect]
     Dosage: UNK

REACTIONS (11)
  - BALANCE DISORDER [None]
  - ASTHENIA [None]
  - TONGUE DRY [None]
  - FATIGUE [None]
  - SWOLLEN TONGUE [None]
  - NAUSEA [None]
  - PNEUMONIA [None]
  - APHASIA [None]
  - CONFUSIONAL STATE [None]
  - LETHARGY [None]
  - WEIGHT DECREASED [None]
